FAERS Safety Report 21189336 (Version 1)
Quarter: 2022Q3

REPORT INFORMATION
  Report Type: Report from Study
  Country: CO (occurrence: CO)
  Receive Date: 20220809
  Receipt Date: 20220809
  Transmission Date: 20221027
  Serious: Yes (Hospitalization, Other)
  Sender: FDA-Public Use
  Company Number: CO-UCBSA-2022044479

PATIENT
  Age: 14 Year
  Sex: Male

DRUGS (2)
  1. LACOSAMIDE [Suspect]
     Active Substance: LACOSAMIDE
     Indication: Seizure
     Dosage: 5 MILLILITER, 2X/DAY (BID)
     Route: 048
     Dates: start: 20220602
  2. VIGABATRIN [Concomitant]
     Active Substance: VIGABATRIN
     Indication: Seizure

REACTIONS (5)
  - Appendicitis [Recovered/Resolved]
  - Peritonitis [Recovered/Resolved]
  - Testicular torsion [Recovered/Resolved]
  - Pyrexia [Recovering/Resolving]
  - Surgery [Unknown]

NARRATIVE: CASE EVENT DATE: 20220701
